FAERS Safety Report 12255093 (Version 2)
Quarter: 2016Q2

REPORT INFORMATION
  Report Type: Report from Study
  Country: US (occurrence: US)
  Receive Date: 20160411
  Receipt Date: 20160419
  Transmission Date: 20160815
  Serious: No
  Sender: FDA-Public Use
  Company Number: US-AMGEN-USASP2016045031

PATIENT
  Age: 72 Year
  Sex: Female

DRUGS (1)
  1. ENBREL [Suspect]
     Active Substance: ETANERCEPT
     Indication: RHEUMATOID ARTHRITIS
     Dosage: 50 MG, QWK
     Route: 058
     Dates: start: 201603

REACTIONS (7)
  - Rubber sensitivity [Unknown]
  - Injection site warmth [Unknown]
  - Injection site pruritus [Unknown]
  - Injection site reaction [Unknown]
  - Injection site swelling [Unknown]
  - Adverse event [Unknown]
  - Injection site erythema [Unknown]

NARRATIVE: CASE EVENT DATE: 2016
